FAERS Safety Report 10265649 (Version 1)
Quarter: 2014Q2

REPORT INFORMATION
  Report Type: Spontaneous
  Country: US (occurrence: US)
  Receive Date: 20140627
  Receipt Date: 20140627
  Transmission Date: 20141212
  Serious: Yes (Other)
  Sender: FDA-Public Use
  Company Number: US-TEVA-490997USA

PATIENT
  Sex: Female
  Weight: 58.57 kg

DRUGS (1)
  1. PARAGARD 380A [Suspect]
     Indication: CONTRACEPTION
     Route: 015
     Dates: start: 201205, end: 20140120

REACTIONS (4)
  - Actinomycosis [Not Recovered/Not Resolved]
  - Fatigue [Recovered/Resolved]
  - Menorrhagia [Unknown]
  - Metrorrhagia [Unknown]
